FAERS Safety Report 8776426 (Version 1)
Quarter: 2012Q4

REPORT INFORMATION
  Report Type: 
  Country: AR (occurrence: AR)
  Receive Date: 20120910
  Receipt Date: 20120910
  Transmission Date: 20130627
  Serious: Yes (Other)
  Sender: FDA-Public Use
  Company Number: PHHY2012AR078084

PATIENT
  Sex: Male

DRUGS (1)
  1. EXELON [Suspect]
     Indication: DEMENTIA ALZHEIMER^S TYPE
     Dosage: 3 mg, BID
     Dates: end: 201203

REACTIONS (3)
  - Circulatory collapse [Not Recovered/Not Resolved]
  - Decreased interest [Not Recovered/Not Resolved]
  - General physical health deterioration [Not Recovered/Not Resolved]
